FAERS Safety Report 18488651 (Version 1)
Quarter: 2020Q4

REPORT INFORMATION
  Report Type: Spontaneous
  Country: US (occurrence: US)
  Receive Date: 20201110
  Receipt Date: 20201110
  Transmission Date: 20210114
  Serious: No
  Sender: FDA-Public Use
  Company Number: US-PURDUE-USA-2020-0150556

PATIENT
  Age: 46 Year
  Sex: Female

DRUGS (6)
  1. PENICILLINS WITH EXTENDED SPECTRUM [Concomitant]
     Active Substance: PENICILLIN
     Indication: PAIN
  2. MORPHINE SULFATE (SIMILAR TO NDA 19-516) [Suspect]
     Active Substance: MORPHINE SULFATE
     Indication: PAIN
     Route: 048
  3. CELECOXIB. [Concomitant]
     Active Substance: CELECOXIB
     Indication: PAIN
     Dosage: 100 MG, BID
     Route: 048
     Dates: start: 20200128, end: 20200320
  4. CELECOXIB. [Concomitant]
     Active Substance: CELECOXIB
     Indication: BURSITIS
  5. MORPHINE SULFATE (SIMILAR TO NDA 19-516) [Suspect]
     Active Substance: MORPHINE SULFATE
     Indication: BURSITIS
  6. PENICILLINS WITH EXTENDED SPECTRUM [Concomitant]
     Active Substance: PENICILLIN
     Indication: BURSITIS

REACTIONS (2)
  - Drug hypersensitivity [Unknown]
  - Chest discomfort [Unknown]

NARRATIVE: CASE EVENT DATE: 20140124
